FAERS Safety Report 23301051 (Version 3)
Quarter: 2025Q1

REPORT INFORMATION
  Report Type: Report from Study
  Country: CA (occurrence: CA)
  Receive Date: 20231215
  Receipt Date: 20250225
  Transmission Date: 20250409
  Serious: Yes (Other)
  Sender: GILEAD
  Company Number: CA-GLAXOSMITHKLINE-CA2023AMR147561

PATIENT
  Age: 56 Year
  Sex: Female

DRUGS (1)
  1. AMBRISENTAN [Suspect]
     Active Substance: AMBRISENTAN
     Indication: Pulmonary arterial hypertension
     Dosage: 10 MG, QD
     Route: 048
     Dates: start: 20100722

REACTIONS (6)
  - Tendon operation [Unknown]
  - Foot operation [Unknown]
  - Multiple sclerosis [Unknown]
  - Cervix carcinoma [Not Recovered/Not Resolved]
  - COVID-19 [Unknown]
  - Nasal congestion [Unknown]

NARRATIVE: CASE EVENT DATE: 20231106
